FAERS Safety Report 10150798 (Version 1)
Quarter: 2014Q2

REPORT INFORMATION
  Report Type: Spontaneous
  Country: US (occurrence: US)
  Receive Date: 20140502
  Receipt Date: 20140502
  Transmission Date: 20141212
  Serious: No
  Sender: FDA-Public Use
  Company Number: US-ASTRAZENECA-2013SE25776

PATIENT
  Age: 91 Year
  Sex: Male

DRUGS (12)
  1. PRILOSEC OTC [Suspect]
     Indication: CONSTIPATION
     Dosage: AFTERNOON
     Route: 048
     Dates: start: 20130401, end: 20130401
  2. PRILOSEC OTC [Suspect]
     Indication: ABDOMINAL DISCOMFORT
     Dosage: AFTERNOON
     Route: 048
     Dates: start: 20130401, end: 20130401
  3. PRILOSEC OTC [Suspect]
     Indication: CONSTIPATION
     Route: 048
  4. PRILOSEC OTC [Suspect]
     Indication: ABDOMINAL DISCOMFORT
     Route: 048
  5. PANTOPRAZOLE [Concomitant]
  6. LYRICA [Concomitant]
  7. CLOPIDOGREL [Concomitant]
  8. BYSTOLIC [Concomitant]
  9. TYLENOL [Concomitant]
  10. MIRALAX [Concomitant]
  11. MICARDIS [Concomitant]
  12. ALENDRONATE [Concomitant]

REACTIONS (2)
  - Diarrhoea [Recovered/Resolved]
  - Inappropriate schedule of drug administration [Recovered/Resolved]
